FAERS Safety Report 5853417-2 (Version None)
Quarter: 2008Q3

REPORT INFORMATION
  Report Type: 
  Country: None (occurrence: None)
  Receive Date: 20080820
  Receipt Date: 20080806
  Transmission Date: 20090109
  Serious: Yes (Other)
  Sender: FDA-Public Use
  Company Number: POMP-10402

PATIENT
  Age: 6 Year
  Sex: Female
  Weight: 20 kg

DRUGS (1)
  1. MYOZYME [Suspect]
     Indication: GLYCOGEN STORAGE DISEASE TYPE II
     Dosage: 20 MG/KG, Q2W, INTRAVENOUS
     Route: 042
     Dates: start: 20041201

REACTIONS (15)
  - ACTIVITIES OF DAILY LIVING IMPAIRED [None]
  - CHILLS [None]
  - FACE OEDEMA [None]
  - FATIGUE [None]
  - FLUSHING [None]
  - HEART RATE INCREASED [None]
  - HYPERSENSITIVITY [None]
  - INFUSION RELATED REACTION [None]
  - NONSPECIFIC REACTION [None]
  - OXYGEN SATURATION DECREASED [None]
  - PYREXIA [None]
  - SOMNOLENCE [None]
  - URTICARIA [None]
  - VIRAL INFECTION [None]
  - VOMITING [None]
